FAERS Safety Report 23409540 (Version 5)
Quarter: 2024Q1

REPORT INFORMATION
  Report Type: Report from Study
  Country: US (occurrence: US)
  Receive Date: 20240117
  Receipt Date: 20240304
  Transmission Date: 20240410
  Serious: Yes (Death, Hospitalization, Other)
  Sender: FDA-Public Use
  Company Number: US-SANDOZ-SDZ2023US045172

PATIENT
  Age: 73 Year
  Sex: Female
  Weight: 73.288 kg

DRUGS (3)
  1. TREPROSTINIL [Suspect]
     Active Substance: TREPROSTINIL
     Dosage: 46 NG PER KG PER, CONT
     Route: 042
     Dates: start: 20230925
  2. TREPROSTINIL [Suspect]
     Active Substance: TREPROSTINIL
     Dosage: 60 NG/KG/ MIN
     Route: 042
     Dates: start: 20230925
  3. TREPROSTINIL [Suspect]
     Active Substance: TREPROSTINIL
     Indication: Pulmonary arterial hypertension
     Dosage: 34 NG/KG/ MIIN, CONT
     Route: 042
     Dates: start: 20230925

REACTIONS (8)
  - Death [Fatal]
  - Cardiac arrest [Unknown]
  - Swelling [Unknown]
  - Limb discomfort [Unknown]
  - Dyspnoea [Not Recovered/Not Resolved]
  - Joint swelling [Unknown]
  - Peripheral swelling [Unknown]
  - Adverse drug reaction [Unknown]

NARRATIVE: CASE EVENT DATE: 20240109
